FAERS Safety Report 20435383 (Version 1)
Quarter: 2022Q1

REPORT INFORMATION
  Report Type: Report from Study
  Country: US (occurrence: US)
  Receive Date: 20220206
  Receipt Date: 20220206
  Transmission Date: 20220424
  Serious: Yes (Disabling, Other)
  Sender: FDA-Public Use
  Company Number: US-ABBVIE-22K-163-4261734-00

PATIENT
  Sex: Female

DRUGS (2)
  1. SKYRIZI [Suspect]
     Active Substance: RISANKIZUMAB-RZAA
     Indication: Psoriasis
     Route: 058
     Dates: start: 20211103
  2. SKYRIZI [Suspect]
     Active Substance: RISANKIZUMAB-RZAA
     Route: 058
     Dates: start: 20220131

REACTIONS (7)
  - Aphonia [Unknown]
  - Paranasal sinus hypersecretion [Unknown]
  - Fatigue [Unknown]
  - Cough [Unknown]
  - Infection [Unknown]
  - Oropharyngeal pain [Unknown]
  - Pyrexia [Unknown]
